FAERS Safety Report 10177757 (Version 1)
Quarter: 2014Q2

REPORT INFORMATION
  Report Type: Spontaneous
  Country: US (occurrence: US)
  Receive Date: 20140516
  Receipt Date: 20140516
  Transmission Date: 20141212
  Serious: Yes (Other)
  Sender: FDA-Public Use
  Company Number: US-SANOFI-AVENTIS-2013SA064958

PATIENT
  Age: 61 Year
  Sex: Male
  Weight: 104 kg

DRUGS (6)
  1. SOLOSTAR [Suspect]
  2. APIDRA [Suspect]
     Dates: start: 20120620
  3. APIDRA [Suspect]
     Dates: end: 201208
  4. APIDRA [Suspect]
  5. SOLOSTAR [Suspect]
  6. LANTUS SOLOSTAR [Suspect]

REACTIONS (2)
  - Hypoglycaemia [Recovered/Resolved]
  - Wrong drug administered [Unknown]
